FAERS Safety Report 12561870 (Version 4)
Quarter: 2016Q4

REPORT INFORMATION
  Report Type: Report from Study
  Country: US (occurrence: US)
  Receive Date: 20160715
  Receipt Date: 20161011
  Transmission Date: 20170207
  Serious: Yes (Hospitalization)
  Sender: FDA-Public Use
  Company Number: US-ACTELION-A-US2016-139145

PATIENT
  Age: 79 Year
  Sex: Female

DRUGS (3)
  1. VELETRI [Suspect]
     Active Substance: EPOPROSTENOL
     Indication: PULMONARY ARTERIAL HYPERTENSION
     Dosage: 34.5 NG/KG, PER MIN
     Route: 042
     Dates: start: 20101004
  2. LETAIRIS [Concomitant]
     Active Substance: AMBRISENTAN
  3. VELETRI [Suspect]
     Active Substance: EPOPROSTENOL
     Dosage: 38 NG/KG, PER MIN
     Route: 042

REACTIONS (6)
  - Cardiac flutter [Unknown]
  - Large intestinal haemorrhage [Unknown]
  - Anaemia [Unknown]
  - Haemoglobin decreased [Unknown]
  - Transfusion [Unknown]
  - Dyspnoea exertional [Unknown]
